FAERS Safety Report 6385433-9 (Version None)
Quarter: 2009Q4

REPORT INFORMATION
  Report Type: 
  Country: None (occurrence: None)
  Receive Date: 20091002
  Receipt Date: 20080829
  Transmission Date: 20100525
  Serious: No
  Sender: FDA-Public Use
  Company Number: US-ASTRAZENECA-2008UW17944

PATIENT
  Age: 70 Year
  Sex: Female
  Weight: 73.9 kg

DRUGS (5)
  1. ARIMIDEX [Suspect]
     Indication: BREAST CANCER
     Route: 048
     Dates: start: 20060202
  2. CYMBALTA [Concomitant]
  3. LEVOTHROID [Concomitant]
  4. TYLENOL [Concomitant]
     Dosage: AS NEEDED
  5. AMBIEN [Concomitant]
     Dosage: AS NEEDED

REACTIONS (6)
  - ARTHRALGIA [None]
  - BACK PAIN [None]
  - FATIGUE [None]
  - PAIN [None]
  - PAIN IN EXTREMITY [None]
  - WEIGHT INCREASED [None]
